FAERS Safety Report 10591768 (Version 3)
Quarter: 2014Q4

REPORT INFORMATION
  Report Type: Spontaneous
  Country: IQ (occurrence: IQ)
  Receive Date: 20141118
  Receipt Date: 20141124
  Transmission Date: 20150529
  Serious: Yes (Death, Life-Threatening, Hospitalization, Disabling, Other)
  Sender: FDA-Public Use
  Company Number: PHHY2014IQ142844

PATIENT
  Age: 37 Year
  Sex: Male
  Weight: 66 kg

DRUGS (2)
  1. TASIGNA [Suspect]
     Active Substance: NILOTINIB
     Dosage: 800 MG, QD
     Route: 065
     Dates: end: 201405
  2. TASIGNA [Suspect]
     Active Substance: NILOTINIB
     Indication: CHRONIC MYELOID LEUKAEMIA
     Dosage: 800 MG, QD
     Route: 065
     Dates: start: 201305

REACTIONS (11)
  - Malaise [Unknown]
  - Pulmonary haemorrhage [Fatal]
  - Lymphadenopathy [Unknown]
  - Chronic myeloid leukaemia transformation [Unknown]
  - Petechiae [Unknown]
  - Hepatosplenomegaly [Unknown]
  - Pancytopenia [Unknown]
  - Thrombocytopenia [Not Recovered/Not Resolved]
  - Blast crisis in myelogenous leukaemia [Not Recovered/Not Resolved]
  - Rash generalised [Unknown]
  - Oncologic complication [Unknown]

NARRATIVE: CASE EVENT DATE: 201410
